FAERS Safety Report 7628991-6 (Version None)
Quarter: 2011Q3

REPORT INFORMATION
  Report Type: 
  Country: None (occurrence: None)
  Receive Date: 20110722
  Receipt Date: 20110401
  Transmission Date: 20111222
  Serious: No
  Sender: FDA-Public Use
  Company Number: US-MYLANLABS-2011S1006233

PATIENT
  Age: 68 Year
  Sex: Female

DRUGS (13)
  1. CLONIDINE HYDROCHLORIDE [Suspect]
     Indication: BLOOD PRESSURE INCREASED
     Route: 048
     Dates: start: 20110101, end: 20110101
  2. CLONIDINE HYDROCHLORIDE [Suspect]
     Route: 048
     Dates: start: 20110301
  3. ALTACE [Concomitant]
  4. DIOVAN [Concomitant]
  5. CENTRUM SILVER [Concomitant]
  6. CARDURA [Concomitant]
  7. ZOCOR [Concomitant]
  8. POTASSIUM [Concomitant]
  9. TOPROL-XL [Concomitant]
  10. CALTRATE + D /00188401/ [Concomitant]
  11. HYDROCHLOROTHIAZIDE [Concomitant]
  12. ASPIRIN [Concomitant]
  13. MAGNESIUM [Concomitant]

REACTIONS (1)
  - HYPERTENSION [None]
